FAERS Safety Report 6254667-6 (Version None)
Quarter: 2009Q3

REPORT INFORMATION
  Report Type: 
  Country: None (occurrence: None)
  Receive Date: 20090702
  Receipt Date: 20090630
  Transmission Date: 20100115
  Serious: No
  Sender: FDA-Public Use
  Company Number: US-B.I. PHARMACEUTICALS,INC./RIDGEFIELD-2009-BP-01273BP

PATIENT
  Sex: Female
  Weight: 63 kg

DRUGS (2)
  1. MOBIC [Suspect]
     Indication: ARTHRITIS
     Dosage: 7.5 MG
     Route: 048
     Dates: start: 20090112, end: 20090126
  2. MOBIC [Suspect]
     Indication: MUSCULOSKELETAL PAIN

REACTIONS (2)
  - DEAFNESS [None]
  - TINNITUS [None]
